APPROVED DRUG PRODUCT: ISOETHARINE MESYLATE
Active Ingredient: ISOETHARINE MESYLATE
Strength: 0.34MG/INH
Dosage Form/Route: AEROSOL, METERED;INHALATION
Application: A087858 | Product #001
Applicant: ALPHARMA US PHARMACEUTICALS DIVISION
Approved: Aug 21, 1984 | RLD: No | RS: No | Type: DISCN